FAERS Safety Report 11225392 (Version 1)
Quarter: 2015Q2

REPORT INFORMATION
  Report Type: Spontaneous
  Country: US (occurrence: None)
  Receive Date: 20150626
  Receipt Date: 20150626
  Transmission Date: 20150821
  Serious: Yes (Life-Threatening, Hospitalization)
  Sender: FDA-Public Use
  Company Number: None

PATIENT
  Age: 72 Year
  Sex: Female
  Weight: 81.3 kg

DRUGS (1)
  1. WARFARIN [Suspect]
     Active Substance: WARFARIN
     Indication: ATRIAL FIBRILLATION
     Dosage: 1MG QTF ORAL?LONG TERM
     Route: 048

REACTIONS (6)
  - Post procedural complication [None]
  - Therapy cessation [None]
  - Abdominal wall haematoma [None]
  - Internal haemorrhage [None]
  - Colon operation [None]
  - International normalised ratio increased [None]

NARRATIVE: CASE EVENT DATE: 20150615
